FAERS Safety Report 9056820 (Version 1)
Quarter: 2013Q1

REPORT INFORMATION
  Report Type: Spontaneous
  Country: US (occurrence: US)
  Receive Date: 20130201
  Receipt Date: 20130201
  Transmission Date: 20140127
  Serious: No
  Sender: FDA-Public Use
  Company Number: US-GALDERMA-US-GDP-12414883

PATIENT
  Age: 13 None
  Sex: Female
  Weight: 45 kg

DRUGS (2)
  1. EPIDUO [Suspect]
     Indication: ACNE
     Route: 061
     Dates: start: 201206, end: 20120830
  2. MINOCYCLINE [Concomitant]
     Indication: ACNE
     Route: 048

REACTIONS (7)
  - Acne pustular [Recovered/Resolved]
  - Scar [Recovered/Resolved]
  - Acne [Recovered/Resolved]
  - Erythema [Recovered/Resolved]
  - Skin irritation [Recovered/Resolved]
  - Drug ineffective [Not Recovered/Not Resolved]
  - Acne [None]
